FAERS Safety Report 7152374-9 (Version None)
Quarter: 2010Q4

REPORT INFORMATION
  Report Type: 
  Country: None (occurrence: None)
  Receive Date: 20101209
  Receipt Date: 20101209
  Transmission Date: 20110411
  Serious: Yes (Other)
  Sender: FDA-Public Use
  Company Number: None

PATIENT
  Sex: Male
  Weight: 102.0593 kg

DRUGS (1)
  1. OXYCONTIN [Suspect]
     Indication: NEURALGIA
     Dosage: 80 MG 13 HOURS EVERY 3 HRS ORAL
     Route: 048
     Dates: start: 20100815, end: 20101130

REACTIONS (2)
  - DIARRHOEA [None]
  - PRODUCT FORMULATION ISSUE [None]
